FAERS Safety Report 6496025-5 (Version None)
Quarter: 2009Q4

REPORT INFORMATION
  Report Type: 
  Country: None (occurrence: None)
  Receive Date: 20091214
  Receipt Date: 20090921
  Transmission Date: 20100525
  Serious: Yes (Hospitalization)
  Sender: FDA-Public Use
  Company Number: US-BRISTOL-MYERS SQUIBB COMPANY-14783005

PATIENT
  Age: 1 Decade
  Sex: Male

DRUGS (4)
  1. ABILIFY [Suspect]
     Indication: BIPOLAR I DISORDER
     Route: 048
     Dates: start: 20090814
  2. TRAZODONE HCL [Suspect]
  3. BACTRIM DS [Suspect]
     Indication: URINARY TRACT INFECTION
  4. MOTRIN [Suspect]
     Indication: HEADACHE

REACTIONS (1)
  - DYSTONIA [None]
